FAERS Safety Report 5776283-2 (Version None)
Quarter: 2008Q2

REPORT INFORMATION
  Report Type: 
  Country: None (occurrence: None)
  Receive Date: 20080617
  Receipt Date: 20080617
  Transmission Date: 20081010
  Serious: Yes (Hospitalization)
  Sender: FDA-Public Use
  Company Number: None

PATIENT
  Age: 83 Year
  Sex: Female
  Weight: 62 kg

DRUGS (3)
  1. WARFARIN SODIUM [Suspect]
     Indication: ATRIAL FIBRILLATION
     Dosage: 3MG DAILY X 4 MG SAT DAILY PO CHRONIC
     Route: 048
  2. COUMADIN [Concomitant]
  3. AMIODARONE HCL [Concomitant]

REACTIONS (2)
  - FALL [None]
  - SUBDURAL HAEMATOMA [None]
